FAERS Safety Report 14916468 (Version 1)
Quarter: 2018Q2

REPORT INFORMATION
  Report Type: Spontaneous
  Country: US (occurrence: US)
  Receive Date: 20180519
  Receipt Date: 20180519
  Transmission Date: 20180711
  Serious: No
  Sender: FDA-Public Use
  Company Number: US-JNJFOC-20180437141

PATIENT
  Age: 66 Year
  Sex: Female
  Weight: 81.65 kg

DRUGS (6)
  1. CHILDRENS TYLENOL [Suspect]
     Active Substance: ACETAMINOPHEN
     Indication: PAIN
     Dosage: EVERY 1-3 HOURS
     Route: 065
     Dates: start: 20180329
  2. CHILDRENS TYLENOL [Suspect]
     Active Substance: ACETAMINOPHEN
     Indication: HERNIA
     Dosage: EVERY 1-3 HOURS
     Route: 065
     Dates: start: 20180326
  3. CHILDRENS TYLENOL [Suspect]
     Active Substance: ACETAMINOPHEN
     Indication: HERNIA
     Route: 065
     Dates: start: 20180413
  4. CHILDRENS TYLENOL [Suspect]
     Active Substance: ACETAMINOPHEN
     Indication: PAIN
     Dosage: EVERY 1-3 HOURS
     Route: 065
     Dates: start: 20180326
  5. CHILDRENS TYLENOL [Suspect]
     Active Substance: ACETAMINOPHEN
     Indication: HERNIA
     Dosage: EVERY 1-3 HOURS
     Route: 065
     Dates: start: 20180329
  6. CHILDRENS TYLENOL [Suspect]
     Active Substance: ACETAMINOPHEN
     Indication: PAIN
     Route: 065
     Dates: start: 20180413

REACTIONS (3)
  - Therapeutic response unexpected [Unknown]
  - Drug administered to patient of inappropriate age [Unknown]
  - Product use in unapproved indication [Unknown]

NARRATIVE: CASE EVENT DATE: 20180326
